FAERS Safety Report 16725928 (Version 1)
Quarter: 2019Q3

REPORT INFORMATION
  Report Type: Spontaneous
  Country: US (occurrence: US)
  Receive Date: 20190821
  Receipt Date: 20190821
  Transmission Date: 20191005
  Serious: No
  Sender: FDA-Public Use
  Company Number: PHEH2019US033574

PATIENT
  Sex: Female

DRUGS (1)
  1. RYDAPT [Suspect]
     Active Substance: MIDOSTAURIN
     Indication: DIARRHOEA
     Dosage: 50 MG, BID
     Route: 048
     Dates: start: 20190705

REACTIONS (2)
  - Diarrhoea [Recovering/Resolving]
  - Product use in unapproved indication [Unknown]
